FAERS Safety Report 20011496 (Version 2)
Quarter: 2021Q4

REPORT INFORMATION
  Report Type: Spontaneous
  Country: JP (occurrence: JP)
  Receive Date: 20211029
  Receipt Date: 20211112
  Transmission Date: 20220303
  Serious: Yes (Other)
  Sender: FDA-Public Use
  Company Number: JP-NOVARTISPH-NVSJ2020JP001276

PATIENT
  Age: 67 Year
  Sex: Male

DRUGS (9)
  1. TERBINAFINE HYDROCHLORIDE [Suspect]
     Active Substance: TERBINAFINE HYDROCHLORIDE
     Indication: Tinea capitis
     Dosage: UNK
     Route: 048
  2. PREDNISOLONE VALERATE ACETATE [Suspect]
     Active Substance: PREDNISOLONE VALERATE ACETATE
     Indication: Product used for unknown indication
     Dosage: UNK
     Route: 061
  3. FAROPENEM SODIUM [Concomitant]
     Active Substance: FAROPENEM SODIUM
     Indication: Product used for unknown indication
     Dosage: UNK
     Route: 065
  4. ITRACONAZOLE [Concomitant]
     Active Substance: ITRACONAZOLE
     Indication: Product used for unknown indication
     Dosage: UNK
     Route: 065
  5. MONTELUKAST SODIUM [Concomitant]
     Active Substance: MONTELUKAST SODIUM
     Indication: Product used for unknown indication
     Dosage: UNK
     Route: 065
  6. CETIRIZINE HYDROCHLORIDE [Concomitant]
     Active Substance: CETIRIZINE HYDROCHLORIDE
     Indication: Product used for unknown indication
     Dosage: UNK
     Route: 065
  7. ZOLPIDEM TARTRATE [Concomitant]
     Active Substance: ZOLPIDEM TARTRATE
     Indication: Product used for unknown indication
     Dosage: UNK
     Route: 065
  8. BETAMETHASONE BUTYRATE PROPIONATE [Concomitant]
     Active Substance: BETAMETHASONE BUTYRATE PROPIONATE
     Indication: Product used for unknown indication
     Dosage: UNK
     Route: 065
  9. FUSIDATE SODIUM [Concomitant]
     Active Substance: FUSIDATE SODIUM
     Indication: Product used for unknown indication
     Dosage: UNK
     Route: 065

REACTIONS (4)
  - Immune reconstitution inflammatory syndrome [Recovering/Resolving]
  - Inflammation [Unknown]
  - Alopecia [Recovering/Resolving]
  - Tinea capitis [Recovering/Resolving]
